FAERS Safety Report 9143210 (Version 1)
Quarter: 2013Q1

REPORT INFORMATION
  Report Type: Spontaneous
  Country: US (occurrence: US)
  Receive Date: 20130306
  Receipt Date: 20130306
  Transmission Date: 20140127
  Serious: No
  Sender: FDA-Public Use
  Company Number: US-ENDO PHARMACEUTICALS INC.-OPER20110005

PATIENT
  Age: 64 Year
  Sex: Female
  Weight: 65.83 kg

DRUGS (9)
  1. OPANA ER [Suspect]
     Indication: PAIN
     Route: 048
     Dates: start: 20101226, end: 20101230
  2. OPANA ER [Suspect]
     Route: 048
     Dates: start: 20110105, end: 20110105
  3. STEROID EYE DROPS [Concomitant]
     Indication: EYE OPERATION
     Dosage: UNK
     Route: 047
     Dates: start: 201009
  4. SAVELLA [Concomitant]
     Indication: HEADACHE
     Dosage: UNK
     Dates: start: 201007
  5. SINGULAIR [Concomitant]
     Indication: HYPERSENSITIVITY
     Dosage: UNK
     Dates: start: 2009
  6. SYNTHROID [Concomitant]
     Indication: HYPOTHYROIDISM
     Dosage: UNK
     Dates: start: 1990
  7. PERCOCET [Concomitant]
     Indication: PAIN
     Route: 048
  8. OXYCONTIN [Concomitant]
     Indication: PAIN
     Dates: start: 2000, end: 20101226
  9. OXYCONTIN [Concomitant]
     Dates: start: 20101230, end: 20110104

REACTIONS (9)
  - Influenza like illness [Recovered/Resolved]
  - Tinnitus [Recovered/Resolved]
  - Heart rate irregular [Recovered/Resolved]
  - Pain [Recovered/Resolved]
  - Feeling abnormal [Recovered/Resolved]
  - Abdominal pain [Recovered/Resolved]
  - Feeling jittery [Recovered/Resolved]
  - Tachycardia [Recovered/Resolved]
  - Nausea [Recovered/Resolved]
